FAERS Safety Report 11697477 (Version 1)
Quarter: 2015Q4

REPORT INFORMATION
  Report Type: Spontaneous
  Country: US (occurrence: US)
  Receive Date: 20151104
  Receipt Date: 20151104
  Transmission Date: 20160304
  Serious: No
  Sender: FDA-Public Use
  Company Number: US-PFIZER INC-2004055323

PATIENT
  Age: 35 Year
  Sex: Male
  Weight: 86.18 kg

DRUGS (5)
  1. VIAGRA [Suspect]
     Active Substance: SILDENAFIL CITRATE
     Indication: ERECTILE DYSFUNCTION
     Route: 048
  2. LEVETIRACETAM. [Concomitant]
     Active Substance: LEVETIRACETAM
     Route: 065
  3. TADALAFIL [Concomitant]
     Active Substance: TADALAFIL
     Route: 048
  4. TESTOSTERONE CIPIONATE [Concomitant]
     Active Substance: TESTOSTERONE
     Route: 062
  5. CARBAMAZEPINE. [Concomitant]
     Active Substance: CARBAMAZEPINE
     Route: 065

REACTIONS (1)
  - Testicular swelling [Recovered/Resolved]
